FAERS Safety Report 5123200-4 (Version None)
Quarter: 2006Q4

REPORT INFORMATION
  Report Type: 
  Country: None (occurrence: None)
  Receive Date: 20061005
  Receipt Date: 20060928
  Transmission Date: 20070319
  Serious: Yes (Other)
  Sender: FDA-Public Use
  Company Number: 2006097047

PATIENT
  Age: 75 Year
  Sex: Female
  Weight: 58.514 kg

DRUGS (4)
  1. XANAX [Suspect]
     Indication: PANIC ATTACK
     Dosage: 1 MG (0.25 MG, 4 IN 1 D), ORAL
     Route: 048
     Dates: start: 19900101
  2. CITALOPRAM HYDROBROMIDE [Suspect]
     Indication: DEPRESSION
     Dosage: 40 MG (40 MG, 1 IN 1 D), ORAL
     Route: 048
     Dates: start: 20030101
  3. CITALOPRAM HYDROBROMIDE       (CITALOPRAM) [Concomitant]
  4. GLUCOSAMINE W/CHONDROITIN [Concomitant]

REACTIONS (5)
  - BALANCE DISORDER [None]
  - DEPRESSION [None]
  - DYSPNOEA [None]
  - HEART RATE DECREASED [None]
  - HYPOTENSION [None]
